FAERS Safety Report 10956931 (Version 1)
Quarter: 2015Q1

REPORT INFORMATION
  Report Type: Spontaneous
  Country: IN (occurrence: IN)
  Receive Date: 20150326
  Receipt Date: 20150326
  Transmission Date: 20150721
  Serious: Yes (Death, Other)
  Sender: FDA-Public Use
  Company Number: IN-PFIZER INC-2015102560

PATIENT
  Sex: Male

DRUGS (8)
  1. FLUCONAZOLE. [Suspect]
     Active Substance: FLUCONAZOLE
     Indication: ANTIFUNGAL PROPHYLAXIS
     Dosage: 3 MG/KG (OF BODY WEIGHT), 2X/WEEK
  2. MEROPENEM. [Concomitant]
     Active Substance: MEROPENEM
     Dosage: UNK
  3. AMPHOTERICIN B. [Suspect]
     Active Substance: AMPHOTERICIN B
     Dosage: 1.5 MG/KG, UNK
  4. AMPICILLIN [Concomitant]
     Active Substance: AMPICILLIN
     Dosage: UNK
  5. OFLOXACIN. [Concomitant]
     Active Substance: OFLOXACIN
     Dosage: UNK
  6. CEFOPERAZONE-SULBACTAM [Concomitant]
     Dosage: UNK
  7. GENTAMICIN. [Concomitant]
     Active Substance: GENTAMICIN
     Dosage: UNK
  8. VORICONAZOLE. [Suspect]
     Active Substance: VORICONAZOLE
     Dosage: 2 MG/KG, 2X/DAY

REACTIONS (2)
  - Drug ineffective [Fatal]
  - Drug resistance [Unknown]
